FAERS Safety Report 12996367 (Version 2)
Quarter: 2018Q2

REPORT INFORMATION
  Report Type: Report from Study
  Country: DE (occurrence: DE)
  Receive Date: 20161203
  Receipt Date: 20180508
  Transmission Date: 20180711
  Serious: Yes (Hospitalization)
  Sender: FDA-Public Use
  Company Number: DE-ALEXION PHARMACEUTICALS INC.-A201609322

PATIENT
  Age: 12 Year
  Sex: Male
  Weight: 48.3 kg

DRUGS (23)
  1. ECULIZUMAB [Suspect]
     Active Substance: ECULIZUMAB
     Dosage: 600 MG, Q2W
     Route: 042
     Dates: start: 20140320
  2. PIRITRAMIDE [Concomitant]
     Active Substance: PIRITRAMIDE
     Indication: ABDOMINAL PAIN
     Dosage: UNK
     Route: 065
  3. GRANISETRON [Concomitant]
     Active Substance: GRANISETRON
     Indication: ANTIEMETIC SUPPORTIVE CARE
     Dosage: UNK
     Route: 065
  4. SALINE                             /00075401/ [Concomitant]
     Active Substance: SODIUM CHLORIDE
     Indication: PRODUCT USED FOR UNKNOWN INDICATION
     Dosage: 2 ML, BID
     Route: 055
  5. BIOCARN [Concomitant]
     Indication: PROPHYLAXIS
     Dosage: 20 GTT, EVERY FRIDAY
     Route: 048
     Dates: start: 20120601
  6. 1-ALPHA [Concomitant]
     Active Substance: ALFACALCIDOL
     Dosage: 2 ?G, UNK
     Route: 048
     Dates: start: 20141128
  7. OTRIVEN [Concomitant]
     Active Substance: XYLOMETAZOLINE HYDROCHLORIDE
     Indication: PRODUCT USED FOR UNKNOWN INDICATION
     Dosage: UNK, QHS
     Route: 065
  8. RANITIDINE. [Concomitant]
     Active Substance: RANITIDINE
     Indication: PROPHYLAXIS AGAINST GASTROINTESTINAL ULCER
     Dosage: UNK
     Route: 065
  9. SAIZEN [Concomitant]
     Active Substance: SOMATROPIN
     Dosage: 1.9 MG, QD
     Route: 058
     Dates: start: 20161116
  10. ECULIZUMAB [Suspect]
     Active Substance: ECULIZUMAB
     Indication: ATYPICAL HAEMOLYTIC URAEMIC SYNDROME
     Dosage: 600 MG, Q2W
     Route: 042
     Dates: start: 20120504, end: 20120727
  11. MIRCERA [Concomitant]
     Active Substance: METHOXY POLYETHYLENE GLYCOL-EPOETIN BETA
     Indication: NEPHROGENIC ANAEMIA
     Dosage: 200 ?G, Q2W
     Route: 042
     Dates: start: 20150515
  12. RENVELA [Concomitant]
     Active Substance: SEVELAMER CARBONATE
     Dosage: 2.4 G, TID
     Route: 048
     Dates: start: 20160120, end: 20160415
  13. MORONAL [Concomitant]
     Active Substance: NYSTATIN
     Indication: PRODUCT USED FOR UNKNOWN INDICATION
     Dosage: 2 ML, QID
     Route: 065
     Dates: end: 20161213
  14. SAIZEN [Concomitant]
     Active Substance: SOMATROPIN
     Dosage: 1.75 MG, UNK
     Route: 058
     Dates: start: 20150928, end: 20161115
  15. 1-ALPHA [Concomitant]
     Active Substance: ALFACALCIDOL
     Indication: HYPERPARATHYROIDISM
     Dosage: 2 ?G, UNK
     Route: 048
     Dates: start: 20130101, end: 20130807
  16. METAMIZOLE [Concomitant]
     Active Substance: METAMIZOLE
     Indication: ABDOMINAL PAIN
     Dosage: UNK
     Route: 065
  17. RENVELA [Concomitant]
     Active Substance: SEVELAMER CARBONATE
     Indication: HYPERPHOSPHATAEMIA
     Dosage: 600 MG, QD
     Route: 048
     Dates: start: 20130501, end: 20150928
  18. RENVELA [Concomitant]
     Active Substance: SEVELAMER CARBONATE
     Dosage: 2.4 G, UNK
     Route: 048
     Dates: start: 20150928, end: 20160610
  19. ECULIZUMAB [Suspect]
     Active Substance: ECULIZUMAB
     Dosage: 600 MG, Q2W
     Route: 042
     Dates: start: 20161111
  20. 1-ALPHA [Concomitant]
     Active Substance: ALFACALCIDOL
     Indication: CHRONIC KIDNEY DISEASE-MINERAL AND BONE DISORDER
     Dosage: 0.5 ?G, UNK
     Route: 048
     Dates: start: 20130808, end: 20141128
  21. VITARENAL [Concomitant]
     Indication: PROPHYLAXIS
     Dosage: 1 CAP EVERY WEDNESDAY
     Route: 048
     Dates: start: 20150626
  22. SAIZEN [Concomitant]
     Active Substance: SOMATROPIN
     Indication: GROWTH RETARDATION
     Dosage: 1.2 MG, UNK
     Route: 058
     Dates: start: 20121101, end: 20150928
  23. RENVELA [Concomitant]
     Active Substance: SEVELAMER CARBONATE
     Dosage: 2.4 G, QD
     Route: 048
     Dates: start: 20161220

REACTIONS (1)
  - Peritonitis bacterial [Not Recovered/Not Resolved]

NARRATIVE: CASE EVENT DATE: 20161122
